FAERS Safety Report 10158595 (Version 1)
Quarter: 2014Q2

REPORT INFORMATION
  Report Type: Spontaneous
  Country: US (occurrence: US)
  Receive Date: 20140508
  Receipt Date: 20140508
  Transmission Date: 20141212
  Serious: Yes (Other)
  Sender: FDA-Public Use
  Company Number: US-AMGEN-USASP2014032747

PATIENT
  Age: 63 Year
  Sex: Male

DRUGS (3)
  1. ENBREL [Suspect]
     Indication: PSORIASIS
     Dosage: UNK
     Route: 065
  2. DOVONEX [Concomitant]
     Dosage: UNK
  3. CLOBETASOL                         /00337102/ [Concomitant]
     Dosage: UNK

REACTIONS (1)
  - Dialysis [Unknown]
